FAERS Safety Report 5871181-8 (Version None)
Quarter: 2008Q3

REPORT INFORMATION
  Report Type: 
  Country: None (occurrence: None)
  Receive Date: 20080829
  Receipt Date: 20060925
  Transmission Date: 20090109
  Serious: Yes (Other)
  Sender: FDA-Public Use
  Company Number: 200618015US

PATIENT
  Age: 26 Year
  Sex: Female

DRUGS (2)
  1. LOVENOX [Suspect]
     Indication: JUGULAR VEIN THROMBOSIS
     Dosage: 50 MG BID
     Dates: start: 20060911, end: 20060928
  2. MENOTROPHIN (MENOPUR) [Concomitant]

REACTIONS (2)
  - ABORTION SPONTANEOUS [None]
  - DRUG EXPOSURE DURING PREGNANCY [None]
